FAERS Safety Report 14813391 (Version 1)
Quarter: 2018Q2

REPORT INFORMATION
  Report Type: Spontaneous
  Country: GB (occurrence: GB)
  Receive Date: 20180426
  Receipt Date: 20180426
  Transmission Date: 20180711
  Serious: Yes (Disabling)
  Sender: FDA-Public Use
  Company Number: GB-009507513-1804GBR010261

PATIENT
  Age: 63 Year
  Sex: Female
  Weight: 106 kg

DRUGS (7)
  1. SITAGLIPTIN PHOSPHATE [Suspect]
     Active Substance: SITAGLIPTIN PHOSPHATE
     Dosage: UNK
     Dates: start: 20180219
  2. DOTHIEPIN HYDROCHLORIDE [Concomitant]
     Active Substance: DOTHIEPIN HYDROCHLORIDE
     Dosage: 2 DF, AT NIGHT
     Dates: start: 20180319
  3. BENDROFLUMETHIAZIDE [Concomitant]
     Active Substance: BENDROFLUMETHIAZIDE
     Dosage: 1 DF, EACH MORNING
     Dates: start: 20171127
  4. METFORMIN [Concomitant]
     Active Substance: METFORMIN HYDROCHLORIDE
     Dates: start: 20171124, end: 20180219
  5. PEPPERMINT OIL [Concomitant]
     Active Substance: PEPPERMINT OIL
     Dosage: 3 DF, QD
     Dates: start: 20171120
  6. LOSARTAN POTASSIUM. [Concomitant]
     Active Substance: LOSARTAN POTASSIUM
     Dosage: 1 DF, QD
     Dates: start: 20171127
  7. COLOFAC [Concomitant]
     Active Substance: MEBEVERINE HYDROCHLORIDE
     Dates: start: 20170214

REACTIONS (3)
  - Pain in extremity [Recovered/Resolved]
  - Feeling abnormal [Recovered/Resolved]
  - Dizziness [Recovered/Resolved]

NARRATIVE: CASE EVENT DATE: 20180319
